FAERS Safety Report 8376849-X (Version None)
Quarter: 2012Q2

REPORT INFORMATION
  Report Type: 
  Country: None (occurrence: None)
  Receive Date: 20120522
  Receipt Date: 20120509
  Transmission Date: 20120825
  Serious: Yes (Hospitalization)
  Sender: FDA-Public Use
  Company Number: US-JNJFOC-20120510491

PATIENT
  Sex: Female
  Weight: 104.33 kg

DRUGS (3)
  1. PREDNISONE TAB [Suspect]
     Indication: PRODUCT USED FOR UNKNOWN INDICATION
     Route: 065
  2. REMICADE [Suspect]
     Indication: CROHN'S DISEASE
     Route: 042
     Dates: start: 20020301
  3. CARDIZEM CD [Concomitant]
     Indication: HYPERTENSION
     Route: 048
     Dates: start: 19980101

REACTIONS (3)
  - ADVERSE EVENT [None]
  - ARTHRITIS [None]
  - INTESTINAL OBSTRUCTION [None]
